FAERS Safety Report 25576124 (Version 1)
Quarter: 2025Q3

REPORT INFORMATION
  Report Type: Spontaneous
  Country: BR (occurrence: BR)
  Receive Date: 20250718
  Receipt Date: 20250718
  Transmission Date: 20251020
  Serious: Yes (Hospitalization, Other)
  Sender: NOVITIUM PHARMA
  Company Number: BR-NOVITIUMPHARMA-2025BRNVP01639

PATIENT
  Age: 68 Year
  Sex: Male

DRUGS (4)
  1. PREDNISONE [Suspect]
     Active Substance: PREDNISONE
     Indication: Immunosuppressant drug therapy
  2. TACROLIMUS [Concomitant]
     Active Substance: TACROLIMUS
     Indication: Immunosuppressant drug therapy
  3. TACROLIMUS [Concomitant]
     Active Substance: TACROLIMUS
  4. TACROLIMUS [Concomitant]
     Active Substance: TACROLIMUS
     Dosage: 1MG PLUS1MG

REACTIONS (1)
  - Phaeohyphomycosis [Recovering/Resolving]
